FAERS Safety Report 8905996 (Version 1)
Quarter: 2012Q4

REPORT INFORMATION
  Report Type: Report from Study
  Country: DE (occurrence: DE)
  Receive Date: 20121109
  Receipt Date: 20121109
  Transmission Date: 20130627
  Serious: Yes (Hospitalization)
  Sender: FDA-Public Use
  Company Number: DE-GLAXOSMITHKLINE-B0725829A

PATIENT
  Sex: Female
  Weight: 67.6 kg

DRUGS (4)
  1. LAPATINIB [Suspect]
     Indication: BREAST CANCER
     Dosage: 1250MG Per day
     Route: 048
     Dates: start: 20110322
  2. PACLITAXEL [Suspect]
     Indication: BREAST CANCER
     Dosage: 294MG Every 3 weeks
     Route: 042
     Dates: start: 20110524
  3. DOXORUBICIN [Suspect]
     Indication: BREAST CANCER
     Dosage: 101MG Every 3 weeks
     Route: 042
     Dates: start: 20110524
  4. FORTECORTIN [Concomitant]
     Indication: PROPHYLAXIS
     Dosage: 16MG Per day
     Route: 048
     Dates: start: 20110531, end: 20110531

REACTIONS (1)
  - Thrombocytopenia [Recovered/Resolved]
